FAERS Safety Report 17172038 (Version 1)
Quarter: 2019Q4

REPORT INFORMATION
  Report Type: Spontaneous
  Country: ES (occurrence: ES)
  Receive Date: 20191219
  Receipt Date: 20191219
  Transmission Date: 20200122
  Serious: Yes (Hospitalization, Disabling, Other)
  Sender: FDA-Public Use
  Company Number: GXKR2006ES00959

PATIENT
  Age: 55 Year
  Sex: Male

DRUGS (9)
  1. DEFLAZACORT [Concomitant]
     Active Substance: DEFLAZACORT
     Indication: RHEUMATOID ARTHRITIS
     Dosage: 6 MG, QD
     Route: 065
  2. ISONIAZID. [Suspect]
     Active Substance: ISONIAZID
     Indication: TUBERCULOSIS
     Dosage: 300 MG, QD
     Route: 065
  3. PYRIDOXINE [Concomitant]
     Active Substance: PYRIDOXINE
     Indication: TUBERCULOSIS
     Dosage: 50 MG, QD
     Route: 065
  4. RIFAMPICIN [Concomitant]
     Active Substance: RIFAMPIN
     Indication: TUBERCULOSIS
     Dosage: 600 MG, QD
     Route: 065
  5. ETANERCEPT [Interacting]
     Active Substance: ETANERCEPT
     Dosage: 25 MG, BIW
     Route: 058
  6. DEFLAZACORT [Concomitant]
     Active Substance: DEFLAZACORT
     Route: 065
  7. PIROXICAM. [Concomitant]
     Active Substance: PIROXICAM
     Indication: RHEUMATOID ARTHRITIS
     Dosage: 20 MG, QD
     Route: 065
  8. ETANERCEPT [Interacting]
     Active Substance: ETANERCEPT
     Indication: RHEUMATOID ARTHRITIS
     Dosage: 50 MG, QW
     Route: 058
  9. OMEPRAZOLE. [Concomitant]
     Active Substance: OMEPRAZOLE
     Indication: PRODUCT USED FOR UNKNOWN INDICATION
     Dosage: 20 MG, QD
     Route: 065

REACTIONS (9)
  - Optic neuritis [Recovering/Resolving]
  - Blindness [Recovering/Resolving]
  - Vision blurred [Recovering/Resolving]
  - Optic atrophy [Recovering/Resolving]
  - Headache [Recovering/Resolving]
  - Demyelination [Recovering/Resolving]
  - Visual acuity reduced [Recovering/Resolving]
  - Pupillary disorder [Recovering/Resolving]
  - Drug interaction [Recovering/Resolving]
